FAERS Safety Report 8576782-4 (Version None)
Quarter: 2012Q3

REPORT INFORMATION
  Report Type: 
  Country: None (occurrence: None)
  Receive Date: 20120725
  Receipt Date: 20120711
  Transmission Date: 20120928
  Serious: Yes (Hospitalization)
  Sender: FDA-Public Use
  Company Number: 1349257

PATIENT
  Age: 64 Year
  Sex: Male

DRUGS (20)
  1. ALDACTONE [Suspect]
     Indication: OEDEMA
     Dosage: ORAL
     Route: 048
     Dates: start: 20120607, end: 20120608
  2. PREDNISONE TAB [Concomitant]
  3. PREVISCAN [Concomitant]
  4. CRESTOR [Concomitant]
  5. LEVOTHYROXINE SODIUM [Concomitant]
  6. AMOXICILLIN [Suspect]
     Indication: ANTIBIOTIC THERAPY
     Dosage: ORAL
     Route: 048
     Dates: start: 20120529
  7. ROCEPHIN [Concomitant]
  8. OMEPRAZOLE [Concomitant]
  9. NOROXIN [Concomitant]
  10. VANCOMYCIN [Concomitant]
  11. PARAFFIN [Concomitant]
  12. FERROUS FUMARATE [Concomitant]
  13. ARANESP [Suspect]
     Indication: PRODUCT USED FOR UNKNOWN INDICATION
     Dosage: DOSE DEPENDS ON CYCLE,, SUBCUTANEOUS
     Route: 058
     Dates: start: 20120505, end: 20120605
  14. ZOFRAN [Concomitant]
  15. POLYETHYLENE GLYCOL [Concomitant]
  16. CARBOPLATIN [Suspect]
     Indication: CHEMOTHERAPY
     Dosage: DOSE DEPENDS ON CYCLE,, INTRAVENOUS DRIP
     Route: 041
     Dates: start: 20120514, end: 20120604
  17. NEULASTA [Suspect]
     Indication: PRODUCT USED FOR UNKNOWN INDICATION
     Dosage: SUBCUTANEOUS
     Route: 058
     Dates: start: 20120605, end: 20120605
  18. TAZOBACTAM [Concomitant]
  19. DOCETAXEL [Suspect]
     Indication: CHEMOTHERAPY
     Dosage: DOSE DEPENDS ON CYCLE,, INTRAVENOUS DRIP
     Route: 041
     Dates: start: 20120514, end: 20120604
  20. BISOPROLOL FUMARATE [Concomitant]

REACTIONS (7)
  - ECZEMA [None]
  - RASH MACULO-PAPULAR [None]
  - BICYTOPENIA [None]
  - SKIN EXFOLIATION [None]
  - ERYTHEMA [None]
  - TOXIC SKIN ERUPTION [None]
  - MOUTH ULCERATION [None]
